FAERS Safety Report 10399544 (Version 1)
Quarter: 2014Q3

REPORT INFORMATION
  Report Type: Spontaneous
  Country: AU (occurrence: None)
  Receive Date: 20140819
  Receipt Date: 20140819
  Transmission Date: 20150326
  Serious: Yes (Death, Other)
  Sender: FDA-Public Use
  Company Number: AUR-APL-2014-08703

PATIENT
  Sex: Female

DRUGS (2)
  1. PIPERACILLIN+TAZOBACTAM (PIPERACILLIN, TAZOBACTAM) [Suspect]
     Active Substance: PIPERACILLIN SODIUM\TAZOBACTAM SODIUM
     Indication: PRODUCT USED FOR UNKNOWN INDICATION
  2. ALLOPURINOL (ALLOPURINOL) [Concomitant]
     Active Substance: ALLOPURINOL

REACTIONS (3)
  - Renal failure chronic [None]
  - Respiratory arrest [None]
  - Cardiac arrest [None]
